FAERS Safety Report 6258151-5 (Version None)
Quarter: 2009Q3

REPORT INFORMATION
  Report Type: 
  Country: None (occurrence: None)
  Receive Date: 20090707
  Receipt Date: 20090626
  Transmission Date: 20100115
  Serious: Yes (Hospitalization, Other)
  Sender: FDA-Public Use
  Company Number: AR-PFIZER INC-2008084830

PATIENT

DRUGS (1)
  1. RONFASE [Suspect]
     Indication: OFF LABEL USE
     Dosage: 2 MG, 1X/DAY
     Route: 064
     Dates: start: 20080901

REACTIONS (3)
  - DRUG EXPOSURE DURING PREGNANCY [None]
  - IMMATURE RESPIRATORY SYSTEM [None]
  - INFANTILE APNOEIC ATTACK [None]
